FAERS Safety Report 11463074 (Version 2)
Quarter: 2015Q3

REPORT INFORMATION
  Report Type: Spontaneous
  Country: US (occurrence: US)
  Receive Date: 20150905
  Receipt Date: 20150911
  Transmission Date: 20151125
  Serious: Yes (Other)
  Sender: FDA-Public Use
  Company Number: US-AUROBINDO-AUR-APL-2015-07734

PATIENT
  Age: 86 Year
  Sex: Male

DRUGS (3)
  1. METOPROLOL [Suspect]
     Active Substance: METOPROLOL
     Indication: ATRIAL FIBRILLATION
     Dosage: 1 DF, TWO TIMES A DAY
     Route: 048
     Dates: start: 20150607
  2. ELIQUIS [Suspect]
     Active Substance: APIXABAN
     Indication: CEREBROVASCULAR ACCIDENT PROPHYLAXIS
     Dosage: 5 MG, TWO TIMES A DAY
     Route: 048
     Dates: start: 20150607
  3. CENTRUM SELECT 50+ [Concomitant]
     Active Substance: VITAMINS
     Indication: PRODUCT USED FOR UNKNOWN INDICATION
     Route: 065

REACTIONS (6)
  - Peripheral swelling [Unknown]
  - Pericardial effusion [Unknown]
  - Skin exfoliation [Unknown]
  - Pollakiuria [Unknown]
  - Atrial fibrillation [Unknown]
  - Joint swelling [Unknown]

NARRATIVE: CASE EVENT DATE: 20150608
